FAERS Safety Report 8051846 (Version 2)
Quarter: 2012Q4

REPORT INFORMATION
  Report Type: 
  Country: US (occurrence: US)
  Receive Date: 20110725
  Receipt Date: 20121004
  Transmission Date: 20130627
  Serious: Yes (Other)
  Sender: FDA-Public Use
  Company Number: US-BRISTOL-MYERS SQUIBB COMPANY-15292287

PATIENT
  Age: 78 Year
  Sex: Female
  Weight: 75 kg

DRUGS (3)
  1. COUMADIN [Suspect]
  2. WARFARIN [Suspect]
  3. AZOR [Concomitant]
     Dosage: started a year ago
     Dates: start: 2009

REACTIONS (2)
  - Cataract [Unknown]
  - International normalised ratio increased [Unknown]
